FAERS Safety Report 4696849-0 (Version None)
Quarter: 2005Q2

REPORT INFORMATION
  Report Type: 
  Country: None (occurrence: None)
  Receive Date: 20050620
  Receipt Date: 20050608
  Transmission Date: 20051028
  Serious: Yes (Life-Threatening, Hospitalization)
  Sender: FDA-Public Use
  Company Number: HQWYE827120MAY05

PATIENT
  Age: 66 Year
  Sex: Male

DRUGS (23)
  1. PANTOPRAZOLE SODIUM [Suspect]
     Dosage: 40 MG - ^SOME TIME(S) SOME DF^ ORAL
     Route: 048
     Dates: start: 20050310, end: 20050326
  2. ATARAX [Suspect]
     Dosage: 1 DOSAGE FORM 1X PER 1 DAY ORAL
     Route: 048
     Dates: start: 20050310
  3. AUGMENTIN [Suspect]
     Indication: LUNG DISORDER
     Dosage: ^SOME TIME(S) SOME DF^ ORAL/SOME DAY
     Route: 048
     Dates: end: 20050301
  4. AUGMENTIN [Suspect]
     Indication: RESPIRATORY DISORDER
     Dosage: ^SOME TIME(S) SOME DF^ ORAL/SOME DAY
     Route: 048
     Dates: end: 20050301
  5. AUGMENTIN [Suspect]
     Indication: LUNG DISORDER
     Dosage: ^SOME TIME(S) SOME DF^ ORAL/SOME DAY
     Route: 048
     Dates: start: 20050308, end: 20050321
  6. AUGMENTIN [Suspect]
     Indication: RESPIRATORY DISORDER
     Dosage: ^SOME TIME(S) SOME DF^ ORAL/SOME DAY
     Route: 048
     Dates: start: 20050308, end: 20050321
  7. ACETAMINOPHEN [Suspect]
     Dosage: ^SOME TIME(S) SOME DF^ ORAL
     Route: 048
     Dates: start: 20050223
  8. IOPAMIDOL [Suspect]
     Indication: DIAGNOSTIC PROCEDURE
     Dosage: SEE IMAGE INTRAVENOUS
     Route: 042
     Dates: start: 20050223, end: 20050223
  9. IOPAMIDOL [Suspect]
     Indication: DIAGNOSTIC PROCEDURE
     Dosage: SEE IMAGE INTRAVENOUS
     Route: 042
     Dates: start: 20050322, end: 20050322
  10. MICROPAQUE ^GUERBET^ (BARIUM SULFATE, ) [Suspect]
     Indication: DIAGNOSTIC PROCEDURE
     Dosage: ^SOME DF 1 TIME(S) PER DAY^ ORAL
     Route: 048
     Dates: start: 20050322, end: 20050322
  11. OFLOXACIN [Suspect]
     Indication: LUNG DISORDER
     Dosage: ^SOME TIME(S) SOME DF^ ORAL
     Route: 048
     Dates: start: 20050310, end: 20050321
  12. OFLOXACIN [Suspect]
     Indication: RESPIRATORY DISORDER
     Dosage: ^SOME TIME(S) SOME DF^ ORAL
     Route: 048
     Dates: start: 20050310, end: 20050321
  13. ALLOPURINOL [Suspect]
     Dosage: 1 DOSAGE FORM 1X PER 1 DAY ORAL/^SOME MONTH
     Route: 048
     Dates: start: 20050223, end: 20050101
  14. PRAVASTATIN [Concomitant]
  15. COVERSYL (PERINDOPRIL) [Concomitant]
  16. FORLAX (MACROGOL) [Concomitant]
  17. EDUCTYL (POTASSIUM BITARTRATE/SODIUM BICARBONATE) [Concomitant]
  18. DUROGESIC (FENTANYL) [Concomitant]
  19. LOVENOX [Concomitant]
  20. CORTANCYL (PREDNISONE) [Concomitant]
  21. MORPHINE SULFATE [Concomitant]
  22. NUTRISON (CARBOHYDRATES NOS/LIPIDS NOS/PROTEINS NOS) [Concomitant]
  23. CLAVULANATE POTASSIUM (CLAVULANATE POTASSIUM) [Concomitant]

REACTIONS (16)
  - ATRIAL FIBRILLATION [None]
  - BLOOD FIBRINOGEN DECREASED [None]
  - BLOOD GASES ABNORMAL [None]
  - BLOOD PH INCREASED [None]
  - BODY TEMPERATURE INCREASED [None]
  - COAGULATION TIME SHORTENED [None]
  - GENERAL PHYSICAL HEALTH DETERIORATION [None]
  - HAEMOGLOBIN DECREASED [None]
  - HEART RATE INCREASED [None]
  - MYOGLOBIN BLOOD DECREASED [None]
  - PCO2 DECREASED [None]
  - PLATELET COUNT INCREASED [None]
  - PLEURAL EFFUSION [None]
  - PO2 DECREASED [None]
  - TOXIC EPIDERMAL NECROLYSIS [None]
  - TROPONIN T INCREASED [None]
